FAERS Safety Report 6315610-4 (Version None)
Quarter: 2009Q3

REPORT INFORMATION
  Report Type: 
  Country: None (occurrence: None)
  Receive Date: 20090818
  Receipt Date: 20090803
  Transmission Date: 20100115
  Serious: Yes (Life-Threatening, Hospitalization)
  Sender: FDA-Public Use
  Company Number: 001417

PATIENT
  Sex: Male

DRUGS (6)
  1. LACOSAMIDE [Suspect]
     Dosage: (200 MG BID  ORAL) ; (ORAL)
     Route: 048
     Dates: start: 20090211, end: 20090324
  2. LACOSAMIDE [Suspect]
     Dosage: (200 MG BID  ORAL) ; (ORAL)
     Route: 048
     Dates: start: 20090325, end: 20090403
  3. LAMICTAL [Concomitant]
  4. ZONEGRAN [Concomitant]
  5. FRISIUM [Concomitant]
  6. REBIF [Concomitant]

REACTIONS (1)
  - GRAND MAL CONVULSION [None]
